FAERS Safety Report 5574226-8 (Version None)
Quarter: 2007Q4

REPORT INFORMATION
  Report Type: 
  Country: None (occurrence: None)
  Receive Date: 20071227
  Receipt Date: 20071218
  Transmission Date: 20080405
  Serious: Yes (Hospitalization)
  Sender: FDA-Public Use
  Company Number: FR-BRISTOL-MYERS SQUIBB COMPANY-14022909

PATIENT
  Age: 61 Year
  Sex: Female

DRUGS (4)
  1. ENDOXAN [Suspect]
     Indication: MULTIPLE SCLEROSIS
     Dates: start: 19990101
  2. METHOTREXATE [Suspect]
     Indication: MULTIPLE SCLEROSIS
     Dates: start: 20050101, end: 20061101
  3. BETASERON [Suspect]
     Indication: MULTIPLE SCLEROSIS
     Dates: start: 19980101, end: 19990101
  4. NOVANTRONE [Suspect]
     Indication: MULTIPLE SCLEROSIS
     Dates: start: 20020901, end: 20041201

REACTIONS (1)
  - ACUTE MYELOID LEUKAEMIA [None]
